FAERS Safety Report 9927934 (Version 1)
Quarter: 2014Q1

REPORT INFORMATION
  Report Type: Spontaneous
  Country: US (occurrence: US)
  Receive Date: 20140227
  Receipt Date: 20140227
  Transmission Date: 20141002
  Serious: No
  Sender: FDA-Public Use
  Company Number: US-PFIZER INC-2014054648

PATIENT
  Age: 64 Year
  Sex: Female
  Weight: 115 kg

DRUGS (1)
  1. PREMARIN [Suspect]
     Indication: OESTROGEN REPLACEMENT THERAPY
     Dosage: UNK
     Route: 048

REACTIONS (1)
  - Drug ineffective [Unknown]
